FAERS Safety Report 14657982 (Version 1)
Quarter: 2018Q1

REPORT INFORMATION
  Report Type: Spontaneous
  Country: US (occurrence: US)
  Receive Date: 20180320
  Receipt Date: 20180320
  Transmission Date: 20180509
  Serious: No
  Sender: FDA-Public Use
  Company Number: US-TEVA-821246ACC

PATIENT
  Sex: Female

DRUGS (1)
  1. CICLOSPORIN [Suspect]
     Active Substance: CYCLOSPORINE
     Dosage: PACKAGED: CARTON 30

REACTIONS (4)
  - Headache [Unknown]
  - Nausea [Unknown]
  - Product odour abnormal [Unknown]
  - Vomiting [Unknown]
